FAERS Safety Report 20818551 (Version 1)
Quarter: 2022Q2

REPORT INFORMATION
  Report Type: Spontaneous
  Country: US (occurrence: None)
  Receive Date: 20220512
  Receipt Date: 20220512
  Transmission Date: 20220720
  Serious: Yes (Other)
  Sender: FDA-Public Use
  Company Number: US-Hikma Pharmaceuticals USA Inc.-US-H14001-22-01207

PATIENT
  Sex: Male

DRUGS (5)
  1. ALPRAZOLAM [Suspect]
     Active Substance: ALPRAZOLAM
     Indication: Product used for unknown indication
     Route: 065
  2. ALPRAZOLAM [Suspect]
     Active Substance: ALPRAZOLAM
     Route: 065
  3. REXULTI [Suspect]
     Active Substance: BREXPIPRAZOLE
     Indication: Depression
     Route: 065
     Dates: start: 20220202
  4. REXULTI [Suspect]
     Active Substance: BREXPIPRAZOLE
     Route: 065
     Dates: end: 20220330
  5. PRISTIQ EXTENDED-RELEASE [Concomitant]
     Active Substance: DESVENLAFAXINE SUCCINATE
     Indication: Depression
     Dosage: UNKNOWN
     Route: 065

REACTIONS (14)
  - Abnormal dreams [Recovered/Resolved]
  - Feeling hot [Not Recovered/Not Resolved]
  - Hyperhidrosis [Not Recovered/Not Resolved]
  - Night sweats [Not Recovered/Not Resolved]
  - Thirst [Not Recovered/Not Resolved]
  - Polyuria [Not Recovered/Not Resolved]
  - Tardive dyskinesia [Not Recovered/Not Resolved]
  - Feeling abnormal [Unknown]
  - Condition aggravated [Unknown]
  - Depression [Unknown]
  - Anxiety [Unknown]
  - Palpitations [Recovered/Resolved]
  - Spinal operation [Unknown]
  - Insomnia [Not Recovered/Not Resolved]
